FAERS Safety Report 7241343-6 (Version None)
Quarter: 2011Q1

REPORT INFORMATION
  Report Type: 
  Country: None (occurrence: None)
  Receive Date: 20110120
  Receipt Date: 20110120
  Transmission Date: 20110831
  Serious: Yes (Hospitalization)
  Sender: FDA-Public Use
  Company Number: None

PATIENT
  Sex: Male
  Weight: 83.9 kg

DRUGS (17)
  1. HYDROCORTIZONE -PROTOCORT- [Concomitant]
  2. COUMADIN [Concomitant]
  3. ALBUTEROL [Concomitant]
  4. NORVASC [Concomitant]
  5. ASPIRIN [Concomitant]
  6. METOPROLOL -LOPRESSOR- [Concomitant]
  7. NITROGLYCERIN -NITROSTAT- [Concomitant]
  8. ZOCOR [Concomitant]
  9. ISOSORBIDE MONONITRATE SR -IMDUR- [Concomitant]
  10. MULTI-VITAMIN [Concomitant]
  11. HYDROCHLOROTHIAZIDE [Concomitant]
  12. VISIPAQUE [Suspect]
     Indication: COMPUTERISED TOMOGRAM
     Dosage: X1 IV
     Route: 042
     Dates: start: 20101220, end: 20101220
  13. FISH OIL [Concomitant]
  14. PLAVIX [Concomitant]
  15. LISINOPRIL [Concomitant]
  16. FOLIC ACID [Concomitant]
  17. NIACIN [Concomitant]

REACTIONS (3)
  - RASH GENERALISED [None]
  - SWELLING FACE [None]
  - AURICULAR SWELLING [None]
